FAERS Safety Report 5456986-X (Version None)
Quarter: 2007Q3

REPORT INFORMATION
  Report Type: 
  Country: None (occurrence: None)
  Receive Date: 20070918
  Receipt Date: 20061213
  Transmission Date: 20080115
  Serious: No
  Sender: FDA-Public Use
  Company Number: US-ASTRAZENECA-2006UW27815

PATIENT
  Age: 28 Year
  Sex: Male

DRUGS (3)
  1. SEROQUEL [Suspect]
     Indication: AUTISM SPECTRUM DISORDER
     Route: 048
  2. SEROQUEL [Suspect]
     Route: 048
  3. ZYPREXA [Concomitant]

REACTIONS (1)
  - OBSESSIVE-COMPULSIVE DISORDER [None]
